FAERS Safety Report 9238832 (Version 1)
Quarter: 2013Q1

REPORT INFORMATION
  Report Type: Spontaneous
  Country: US (occurrence: None)
  Receive Date: 20121113
  Receipt Date: 20121113
  Transmission Date: 20140127
  Serious: Yes (Other)
  Sender: FDA-Public Use
  Company Number: PHEH2012US004876

PATIENT
  Sex: 0

DRUGS (3)
  1. TRILEPTAL (OXCARBAZEPINE) UNKNOWN [Suspect]
  2. ZOLOFT (SERTRALINE HYDROCHLORIDE) [Suspect]
  3. NEURONTIN (GABAPENTIN) [Suspect]

REACTIONS (3)
  - Delusion [None]
  - Confusional state [None]
  - Malaise [None]
